FAERS Safety Report 13560864 (Version 1)
Quarter: 2017Q2

REPORT INFORMATION
  Report Type: Spontaneous
  Country: US (occurrence: US)
  Receive Date: 20170518
  Receipt Date: 20170518
  Transmission Date: 20170830
  Serious: No
  Sender: FDA-Public Use
  Company Number: US-APOTEX-2016AP013029

PATIENT
  Age: 88 Year
  Sex: Male

DRUGS (2)
  1. ERYTHROMYCIN. [Concomitant]
     Active Substance: ERYTHROMYCIN
     Indication: PROPHYLAXIS
     Dosage: UNK
     Route: 047
  2. IMIQUIMOD. [Suspect]
     Active Substance: IMIQUIMOD
     Indication: MALIGNANT MELANOMA OF EYELID
     Dosage: DAILY
     Route: 061

REACTIONS (3)
  - Product use in unapproved indication [Unknown]
  - Erythema [Unknown]
  - Ectropion [Recovered/Resolved]
